FAERS Safety Report 20158710 (Version 1)
Quarter: 2021Q4

REPORT INFORMATION
  Report Type: Spontaneous
  Country: US (occurrence: US)
  Receive Date: 20211208
  Receipt Date: 20211208
  Transmission Date: 20220303
  Serious: Yes (Other)
  Sender: FDA-Public Use
  Company Number: US-SCIEGENP-2021SCLIT00979

PATIENT
  Age: 59 Year
  Sex: Male

DRUGS (1)
  1. NAPROXEN [Suspect]
     Active Substance: NAPROXEN
     Indication: Product used for unknown indication
     Dosage: TWICE DAILY USE OF NAPROXEN FROM PAST COUPLE MONTHS
     Route: 065
     Dates: start: 202109

REACTIONS (2)
  - Pyelonephritis acute [Unknown]
  - Renal papillary necrosis [Unknown]

NARRATIVE: CASE EVENT DATE: 20210101
